FAERS Safety Report 13633808 (Version 1)
Quarter: 2017Q2

REPORT INFORMATION
  Report Type: Spontaneous
  Country: US (occurrence: US)
  Receive Date: 20170609
  Receipt Date: 20170609
  Transmission Date: 20170830
  Serious: No
  Sender: FDA-Public Use
  Company Number: US-009507513-1706USA001423

PATIENT

DRUGS (1)
  1. NEXPLANON [Suspect]
     Active Substance: ETONOGESTREL
     Route: 059

REACTIONS (4)
  - Product quality issue [Unknown]
  - Device deployment issue [Recovered/Resolved]
  - Device difficult to use [Recovered/Resolved]
  - No adverse event [Unknown]
